FAERS Safety Report 23945394 (Version 1)
Quarter: 2024Q2

REPORT INFORMATION
  Report Type: Spontaneous
  Country: CN (occurrence: CN)
  Receive Date: 20240606
  Receipt Date: 20240606
  Transmission Date: 20240716
  Serious: Yes (Hospitalization, Other)
  Sender: FDA-Public Use
  Company Number: CN-TAKEDA-2024TUS052889

PATIENT
  Age: 68 Year
  Sex: Male
  Weight: 68 kg

DRUGS (4)
  1. BRENTUXIMAB VEDOTIN [Suspect]
     Active Substance: BRENTUXIMAB VEDOTIN
     Indication: Non-Hodgkin^s lymphoma
     Dosage: 100 MILLIGRAM, QD
     Route: 041
     Dates: start: 20240430, end: 20240430
  2. PREDNISONE [Suspect]
     Active Substance: PREDNISONE
     Indication: Non-Hodgkin^s lymphoma
     Dosage: 30 MILLIGRAM, TID
     Route: 048
     Dates: start: 20240430, end: 20240504
  3. CYCLOPHOSPHAMIDE [Suspect]
     Active Substance: CYCLOPHOSPHAMIDE
     Indication: Non-Hodgkin^s lymphoma
     Dosage: 1300 MILLIGRAM, QD
     Route: 041
     Dates: start: 20240430, end: 20240430
  4. DOXORUBICIN HYDROCHLORIDE [Suspect]
     Active Substance: DOXORUBICIN HYDROCHLORIDE
     Indication: Non-Hodgkin^s lymphoma
     Dosage: 60 MILLIGRAM, QD
     Route: 041
     Dates: start: 20240430, end: 20240430

REACTIONS (1)
  - Myelosuppression [Recovering/Resolving]

NARRATIVE: CASE EVENT DATE: 20240508
